FAERS Safety Report 4565032-1 (Version None)
Quarter: 2005Q1

REPORT INFORMATION
  Report Type: 
  Country: None (occurrence: None)
  Receive Date: 20050131
  Receipt Date: 20041127
  Transmission Date: 20050727
  Serious: Yes (Life-Threatening, Hospitalization)
  Sender: FDA-Public Use
  Company Number: PHHO2004IT16923

PATIENT
  Age: 47 Year
  Sex: Male
  Weight: 78 kg

DRUGS (2)
  1. NEORAL [Suspect]
     Indication: LIVER TRANSPLANT
     Dosage: 50 MG / DAY
     Route: 048
     Dates: end: 20041212
  2. NEORAL [Suspect]
     Dosage: 125 MG / DAY
     Route: 048
     Dates: start: 20040828, end: 20041127

REACTIONS (7)
  - AMMONIA INCREASED [None]
  - DISEASE PROGRESSION [None]
  - HEPATITIS [None]
  - JAUNDICE [None]
  - METABOLIC ACIDOSIS [None]
  - RENAL FAILURE ACUTE [None]
  - VOMITING [None]
